FAERS Safety Report 24719901 (Version 2)
Quarter: 2024Q4

REPORT INFORMATION
  Report Type: Spontaneous
  Country: CN (occurrence: CN)
  Receive Date: 20241211
  Receipt Date: 20241217
  Transmission Date: 20250115
  Serious: Yes (Hospitalization, Other)
  Sender: BOEHRINGER INGELHEIM
  Company Number: CN-BoehringerIngelheim-2024-BI-066819

PATIENT
  Age: 66 Year
  Sex: Male
  Weight: 55.0 kg

DRUGS (3)
  1. OFEV [Suspect]
     Active Substance: NINTEDANIB
     Indication: Interstitial lung disease
     Route: 048
     Dates: start: 20241001, end: 20241108
  2. METHYLPREDNISOLONE SODIUM SUCCINATE [Suspect]
     Active Substance: METHYLPREDNISOLONE SODIUM SUCCINATE
     Indication: Interstitial lung disease
     Route: 042
     Dates: start: 20241014, end: 20241017
  3. LYSINE ACETYLSALICYLATE [Suspect]
     Active Substance: ASPIRIN DL-LYSINE
     Indication: Pyrexia
     Route: 030
     Dates: start: 20241014, end: 20241017

REACTIONS (7)
  - Pyrexia [Recovered/Resolved]
  - Anaemia [Unknown]
  - Haemoptysis [Recovered/Resolved]
  - Full blood count decreased [Recovering/Resolving]
  - Haemorrhage [Recovered/Resolved]
  - Haemoglobin decreased [Recovering/Resolving]
  - Platelet count decreased [Recovering/Resolving]

NARRATIVE: CASE EVENT DATE: 20241014
